FAERS Safety Report 11186351 (Version 1)
Quarter: 2015Q2

REPORT INFORMATION
  Report Type: Spontaneous
  Country: JP (occurrence: JP)
  Receive Date: 20150612
  Receipt Date: 20150612
  Transmission Date: 20150821
  Serious: Yes (Other)
  Sender: FDA-Public Use
  Company Number: JP-ALLERGAN-1511107US

PATIENT
  Sex: Male

DRUGS (1)
  1. BOTOX [Suspect]
     Active Substance: ONABOTULINUMTOXINA
     Indication: CEREBROVASCULAR ACCIDENT
     Dosage: UNK UNK, SINGLE
     Route: 030
     Dates: start: 201501, end: 201501

REACTIONS (3)
  - Abasia [Unknown]
  - Suicidal ideation [Unknown]
  - Muscle tightness [Unknown]
